FAERS Safety Report 6818288-6 (Version None)
Quarter: 2010Q3

REPORT INFORMATION
  Report Type: 
  Country: None (occurrence: None)
  Receive Date: 20100706
  Receipt Date: 20071005
  Transmission Date: 20110219
  Serious: No
  Sender: FDA-Public Use
  Company Number: US-PFIZER INC-2007034782

PATIENT
  Sex: Female
  Weight: 70 kg

DRUGS (15)
  1. ZITHROMAX (CAPS) [Suspect]
     Indication: UPPER RESPIRATORY TRACT INFECTION
     Dates: start: 20070426
  2. CHANTIX [Suspect]
     Indication: SMOKING CESSATION THERAPY
     Dates: start: 20070329
  3. TUSSIONEX ^PENNWALT^ [Suspect]
     Indication: UPPER RESPIRATORY TRACT INFECTION
  4. HISTUSSIN HC [Suspect]
  5. PLAQUENIL [Concomitant]
  6. LISINOPRIL [Concomitant]
  7. PREMARIN [Concomitant]
  8. MONTELUKAST SODIUM [Concomitant]
  9. XANAX [Concomitant]
  10. ELAVIL [Concomitant]
  11. WELLBUTRIN [Concomitant]
  12. LIPITOR [Concomitant]
  13. ADVAIR DISKUS 100/50 [Concomitant]
     Route: 055
  14. ALBUTEROL [Concomitant]
     Route: 055
  15. ANSAID [Concomitant]
     Indication: PAIN
     Dates: start: 19951201

REACTIONS (3)
  - BURNING SENSATION [None]
  - PRURITUS [None]
  - RASH [None]
